FAERS Safety Report 16240051 (Version 3)
Quarter: 2020Q1

REPORT INFORMATION
  Report Type: Spontaneous
  Country: US (occurrence: US)
  Receive Date: 20190425
  Receipt Date: 20200325
  Transmission Date: 20200409
  Serious: Yes (Other)
  Sender: FDA-Public Use
  Company Number: US-ALLERGAN-1858298US

PATIENT
  Sex: Female

DRUGS (2)
  1. TRIPTORELIN PAMOATE - BP [Suspect]
     Active Substance: TRIPTORELIN PAMOATE
     Dosage: UNK UNK, SINGLE
     Route: 030
     Dates: start: 20180524, end: 20180524
  2. TRIPTORELIN PAMOATE - BP [Suspect]
     Active Substance: TRIPTORELIN PAMOATE
     Indication: PRECOCIOUS PUBERTY
     Dosage: SINGLE IN 24 WEEKS
     Route: 030
     Dates: start: 20181016, end: 20181016

REACTIONS (3)
  - Weight increased [Unknown]
  - Epiphyses premature fusion [Unknown]
  - Emotional disorder [Unknown]

NARRATIVE: CASE EVENT DATE: 2018
